FAERS Safety Report 8632440 (Version 2)
Quarter: 2013Q2

REPORT INFORMATION
  Report Type: Report from Study
  Country: TH (occurrence: TH)
  Receive Date: 20120625
  Receipt Date: 20130510
  Transmission Date: 20140414
  Serious: Yes (Other)
  Sender: FDA-Public Use
  Company Number: PHHY2012TH053543

PATIENT
  Sex: Female

DRUGS (2)
  1. GLIVEC [Suspect]
     Indication: GASTROINTESTINAL STROMAL TUMOUR
     Dosage: 400 MG, UNK
     Route: 048
  2. GLIVEC [Suspect]
     Dosage: 800 MG, UNK
     Route: 048

REACTIONS (3)
  - Neoplasm [Unknown]
  - Gastrointestinal stromal tumour [Unknown]
  - Malignant neoplasm progression [Unknown]
